FAERS Safety Report 8300144-8 (Version None)
Quarter: 2012Q2

REPORT INFORMATION
  Report Type: 
  Country: None (occurrence: None)
  Receive Date: 20120420
  Receipt Date: 20120419
  Transmission Date: 20120825
  Serious: No
  Sender: FDA-Public Use
  Company Number: US-PFIZER INC-2012097626

PATIENT
  Sex: Female
  Weight: 70.295 kg

DRUGS (7)
  1. CHANTIX [Suspect]
     Indication: SMOKING CESSATION THERAPY
     Dosage: 0.5 MG, DAILY
     Dates: start: 20120403, end: 20120401
  2. CHANTIX [Suspect]
     Dosage: UNK
     Dates: start: 20120401
  3. HYDROCHLOROTHIAZIDE [Concomitant]
     Dosage: 25 MG, DAILY
  4. OMEPRAZOLE [Concomitant]
     Indication: DYSPEPSIA
     Dosage: 20 MG, DAILY
  5. CENESTIN [Suspect]
     Indication: HORMONE THERAPY
     Dosage: 0.625 MG, DAILY
  6. CENESTIN [Suspect]
     Indication: HYSTERECTOMY
  7. PAXIL [Concomitant]
     Indication: HORMONE THERAPY
     Dosage: 30 MG, DAILY

REACTIONS (1)
  - IRRITABILITY [None]
